FAERS Safety Report 4593106-8 (Version None)
Quarter: 2005Q1

REPORT INFORMATION
  Report Type: 
  Country: None (occurrence: None)
  Receive Date: 20050224
  Receipt Date: 20040109
  Transmission Date: 20050727
  Serious: No
  Sender: FDA-Public Use
  Company Number: US-BRISTOL-MYERS SQUIBB COMPANY-12482279

PATIENT
  Age: 75 Year
  Sex: Female
  Weight: 50 kg

DRUGS (3)
  1. EXCEDRIN (MIGRAINE) [Suspect]
     Indication: PAIN
     Dosage: DOSE VALUE: SHE TOOK ^3-6 TABLETS ABOUT 20 MINUTES AGO^, A FEW MINUTES APART. # OF DOSES: ONCE
     Route: 048
     Dates: start: 20040109, end: 20040109
  2. VERAPAMIL HCL [Concomitant]
  3. LANOXIN [Concomitant]
     Dosage: DOSE VALUE: .0125

REACTIONS (1)
  - MEDICATION ERROR [None]
